FAERS Safety Report 9818404 (Version 1)
Quarter: 2014Q1

REPORT INFORMATION
  Report Type: Spontaneous
  Country: DE (occurrence: DE)
  Receive Date: 20140115
  Receipt Date: 20140115
  Transmission Date: 20141002
  Serious: Yes (Life-Threatening, Hospitalization)
  Sender: FDA-Public Use
  Company Number: DE-B.I. PHARMACEUTICALS,INC./RIDGEFIELD-2014-BI-01715DE

PATIENT
  Age: 88 Year
  Sex: Male
  Weight: 72 kg

DRUGS (2)
  1. DABIGATRAN [Suspect]
     Indication: ATRIAL FIBRILLATION
     Dosage: 220 MG
     Route: 048
     Dates: start: 201306, end: 20131206
  2. ASS [Concomitant]
     Indication: CEREBROVASCULAR ACCIDENT
     Dosage: 100 MG
     Route: 048

REACTIONS (4)
  - Coagulopathy [Recovered/Resolved]
  - Gastrointestinal haemorrhage [Recovered/Resolved]
  - Coagulopathy [Recovered/Resolved]
  - Haematuria [Recovered/Resolved]
